FAERS Safety Report 23213838 (Version 1)
Quarter: 2023Q4

REPORT INFORMATION
  Report Type: Spontaneous
  Country: CA (occurrence: CA)
  Receive Date: 20231121
  Receipt Date: 20231121
  Transmission Date: 20240110
  Serious: Yes (Hospitalization, Other)
  Sender: FDA-Public Use
  Company Number: CA-STRIDES ARCOLAB LIMITED-2023SP017293

PATIENT
  Age: 69 Year
  Sex: Male

DRUGS (3)
  1. PREDNISOLONE [Suspect]
     Active Substance: PREDNISOLONE
     Indication: Graft versus host disease
     Dosage: UNK
     Route: 065
  2. PREDNISOLONE [Suspect]
     Active Substance: PREDNISOLONE
     Indication: Organising pneumonia
     Dosage: 60 MILLIGRAM, DAILY
     Route: 065
  3. PREDNISOLONE [Suspect]
     Active Substance: PREDNISOLONE
     Dosage: UNK, (SIX-WEEK TAPERING DOSE)
     Route: 065

REACTIONS (3)
  - Respiratory failure [Unknown]
  - Organising pneumonia [Unknown]
  - COVID-19 [Not Recovered/Not Resolved]
